FAERS Safety Report 4855972-8 (Version None)
Quarter: 2005Q4

REPORT INFORMATION
  Report Type: 
  Country: None (occurrence: None)
  Receive Date: 20051216
  Receipt Date: 20051215
  Transmission Date: 20060501
  Serious: Yes (Other)
  Sender: FDA-Public Use
  Company Number: US-GLAXOSMITHKLINE-A0586015A

PATIENT
  Age: 30 Year
  Sex: Female

DRUGS (2)
  1. NICODERM CQ [Suspect]
     Dosage: 21MG UNKNOWN
     Route: 062
     Dates: start: 20051213, end: 20051215
  2. NUVARING [Suspect]
     Route: 065

REACTIONS (8)
  - ABNORMAL DREAMS [None]
  - DIZZINESS [None]
  - FATIGUE [None]
  - HALLUCINATION, VISUAL [None]
  - HEART RATE INCREASED [None]
  - HYPERHIDROSIS [None]
  - PALPITATIONS [None]
  - VAGINAL HAEMORRHAGE [None]
